FAERS Safety Report 6907764-3 (Version None)
Quarter: 2010Q3

REPORT INFORMATION
  Report Type: 
  Country: None (occurrence: None)
  Receive Date: 20100712
  Receipt Date: 20100512
  Transmission Date: 20110219
  Serious: No
  Sender: FDA-Public Use
  Company Number: US-001191

PATIENT
  Sex: Female
  Weight: 77.1115 kg

DRUGS (5)
  1. KUVAN [Suspect]
     Indication: PHENYLKETONURIA
     Dosage: (800 MG QD TRANSPLACENTAL)
     Route: 064
     Dates: start: 20100320
  2. OYSTER SHELL CALCIUM WITH VITAMIN D/01675501/ [Concomitant]
  3. OMEGA-3 FATTY ACIDS [Concomitant]
  4. BLACKMORES VITAMIN C [Concomitant]
  5. ZINC [Concomitant]

REACTIONS (1)
  - DRUG EXPOSURE DURING PREGNANCY [None]
